APPROVED DRUG PRODUCT: MEZLIN
Active Ingredient: MEZLOCILLIN SODIUM MONOHYDRATE
Strength: EQ 20GM BASE/VIAL
Dosage Form/Route: INJECTABLE;INJECTION
Application: N050549 | Product #005
Applicant: BAYER PHARMACEUTICALS CORP
Approved: Mar 2, 1988 | RLD: No | RS: No | Type: DISCN